FAERS Safety Report 21013757 (Version 1)
Quarter: 2022Q2

REPORT INFORMATION
  Report Type: Spontaneous
  Country: US (occurrence: US)
  Receive Date: 20220627
  Receipt Date: 20220627
  Transmission Date: 20220720
  Serious: No
  Sender: FDA-Public Use
  Company Number: US-SANOFI-01153799

PATIENT
  Sex: Female

DRUGS (2)
  1. ENOXAPARIN SODIUM [Suspect]
     Active Substance: ENOXAPARIN SODIUM
     Indication: Medical procedure
     Dosage: 80 MG, BID
     Dates: start: 202107
  2. WARFARIN SODIUM [Concomitant]
     Active Substance: WARFARIN SODIUM
     Dosage: UNK

REACTIONS (4)
  - Weight decreased [Unknown]
  - Injection site bruising [Unknown]
  - Injection site rash [Unknown]
  - Injection site pruritus [Unknown]
